FAERS Safety Report 16897254 (Version 1)
Quarter: 2019Q4

REPORT INFORMATION
  Report Type: Spontaneous
  Country: CL (occurrence: CL)
  Receive Date: 20191009
  Receipt Date: 20191009
  Transmission Date: 20200122
  Serious: Yes (Hospitalization)
  Sender: FDA-Public Use
  Company Number: CL-B.I. PHARMACEUTICALS,INC./RIDGEFIELD-2019-BI-105568

PATIENT
  Age: 49 Year

DRUGS (3)
  1. RASAGILINE. [Concomitant]
     Active Substance: RASAGILINE
     Indication: PARKINSON^S DISEASE
     Route: 065
  2. L DOPA [Concomitant]
     Active Substance: LEVODOPA
     Indication: PARKINSON^S DISEASE
     Route: 065
     Dates: start: 2011
  3. SIFROL [Suspect]
     Active Substance: PRAMIPEXOLE
     Indication: PARKINSON^S DISEASE
     Route: 065
     Dates: start: 2011

REACTIONS (10)
  - Blood creatine phosphokinase increased [Unknown]
  - Hallucination [Unknown]
  - Loss of consciousness [Unknown]
  - Tachycardia [Unknown]
  - Hyperhidrosis [Unknown]
  - Pyrexia [Unknown]
  - Dyskinesia [Unknown]
  - Mydriasis [Unknown]
  - Acute kidney injury [Unknown]
  - Rhabdomyolysis [Unknown]
